FAERS Safety Report 9281951 (Version 2)
Quarter: 2013Q3

REPORT INFORMATION
  Report Type: Spontaneous
  Country: US (occurrence: US)
  Receive Date: 20130510
  Receipt Date: 20130919
  Transmission Date: 20140515
  Serious: Yes (Hospitalization)
  Sender: FDA-Public Use
  Company Number: US-BIOGENIDEC-2013BI040905

PATIENT
  Age: 32 Year
  Sex: Female

DRUGS (10)
  1. TYSABRI [Suspect]
     Indication: MULTIPLE SCLEROSIS
     Route: 042
     Dates: start: 20100211, end: 20100802
  2. TYSABRI [Suspect]
     Indication: MULTIPLE SCLEROSIS
     Route: 042
     Dates: start: 20110112, end: 20130429
  3. AVONEX [Concomitant]
     Indication: MULTIPLE SCLEROSIS
     Route: 030
     Dates: start: 20080923
  4. MYRBETRIQ [Concomitant]
     Indication: BLADDER DISORDER
     Route: 048
  5. OXYBUTYNIN [Concomitant]
     Indication: BLADDER DISORDER
     Route: 048
  6. NAMENDA [Concomitant]
     Indication: MEMORY IMPAIRMENT
     Dates: start: 201108, end: 201308
  7. PROVIGIL [Concomitant]
     Indication: MEMORY IMPAIRMENT
     Route: 048
  8. BENADRYL [Concomitant]
     Indication: PREMEDICATION
     Dates: start: 201003, end: 201304
  9. ARICEPT [Concomitant]
     Indication: MEMORY IMPAIRMENT
     Dates: start: 201107, end: 201308
  10. TYLENOL [Concomitant]
     Indication: PREMEDICATION
     Dates: start: 201003, end: 201304

REACTIONS (2)
  - Multiple sclerosis relapse [Recovered/Resolved]
  - Poor venous access [Not Recovered/Not Resolved]
